FAERS Safety Report 9548567 (Version 1)
Quarter: 2013Q3

REPORT INFORMATION
  Report Type: Spontaneous
  Country: US (occurrence: US)
  Receive Date: 20130924
  Receipt Date: 20130924
  Transmission Date: 20140515
  Serious: No
  Sender: FDA-Public Use
  Company Number: US-PFIZER INC-2013272678

PATIENT
  Age: 58 Year
  Sex: Female
  Weight: 68.03 kg

DRUGS (13)
  1. NAPROXEN SODIUM [Suspect]
     Indication: BACK DISORDER
     Dosage: 375 MG, 3X/DAY
     Dates: start: 2013
  2. LYRICA [Suspect]
     Indication: INSOMNIA
     Dosage: 50 MG, 1X/DAY
     Dates: start: 2013, end: 201308
  3. LYRICA [Suspect]
     Indication: RESTLESS LEGS SYNDROME
  4. DICYCLOMINE [Suspect]
     Indication: MYALGIA
     Dosage: UNK
  5. DICYCLOMINE [Suspect]
     Indication: MUSCLE SPASMS
  6. FLEXERIL [Suspect]
     Indication: MYALGIA
     Dosage: UNK
  7. FLEXERIL [Suspect]
     Indication: MUSCLE SPASMS
  8. LEXAPRO [Concomitant]
     Indication: MAJOR DEPRESSION
     Dosage: 20 MG, 1X/DAY
     Dates: start: 2012
  9. ATIVAN [Concomitant]
     Indication: ANXIETY
     Dosage: 1 MG, 1X/DAY
     Dates: start: 201305
  10. ATIVAN [Concomitant]
     Indication: AGITATION
  11. ATIVAN [Concomitant]
     Indication: INSOMNIA
  12. SEROQUEL [Concomitant]
     Indication: MAJOR DEPRESSION
     Dosage: 200 MG
  13. SEROQUEL [Concomitant]
     Indication: MOOD SWINGS

REACTIONS (7)
  - Back injury [Unknown]
  - Back pain [Unknown]
  - Nerve compression [Unknown]
  - Lumbar spinal stenosis [Unknown]
  - Abdominal discomfort [Unknown]
  - Gastrooesophageal reflux disease [Unknown]
  - Drug ineffective [Unknown]
